FAERS Safety Report 8771317 (Version 2)
Quarter: 2013Q2

REPORT INFORMATION
  Report Type: Spontaneous
  Country: BR (occurrence: BR)
  Receive Date: 20120906
  Receipt Date: 20130403
  Transmission Date: 20140414
  Serious: Yes (Other)
  Sender: FDA-Public Use
  Company Number: PHHY2012BR076625

PATIENT
  Sex: Female
  Weight: 58 kg

DRUGS (7)
  1. DIOVAN AMLO FIX [Suspect]
     Indication: HYPERTENSION
     Dosage: 1 DF (160 MG VALS AND 5 MG AMLO), DAILY
     Route: 048
  2. DIOVAN AMLO FIX [Suspect]
     Dosage: 1 DF (320 MG VALS AND 10 MG AMLO), DAILY
     Route: 048
  3. DIOVAN AMLO FIX [Suspect]
     Dosage: 0.5 TABLET (320 MG VALS/10 MG AMLO)
     Route: 048
  4. DIOVAN AMLO FIX [Suspect]
     Dosage: 1 DF (160 MG VALS AND 5 MG AMLO), UNK
     Route: 048
  5. METFORMIN [Concomitant]
     Indication: DIABETES MELLITUS
     Dosage: 2 DF, PER DAY
     Route: 048
  6. ATENOLOL [Concomitant]
     Indication: HYPERTENSION
     Dosage: 2 DF, PER DAY
     Route: 048
  7. EUTHYROX [Concomitant]
     Indication: HYPERTHYROIDISM
     Dosage: 1 DF, PER DAY
     Route: 048

REACTIONS (8)
  - Dementia Alzheimer^s type [Not Recovered/Not Resolved]
  - Depression [Not Recovered/Not Resolved]
  - Blood thyroid stimulating hormone increased [Recovered/Resolved]
  - Blood cholesterol increased [Recovering/Resolving]
  - Wrong technique in drug usage process [Unknown]
  - Abdominal pain upper [Recovering/Resolving]
  - Blood pressure decreased [Recovered/Resolved]
  - Blood pressure increased [Recovering/Resolving]
